FAERS Safety Report 13832278 (Version 1)
Quarter: 2017Q3

REPORT INFORMATION
  Report Type: Spontaneous
  Country: US (occurrence: US)
  Receive Date: 20170803
  Receipt Date: 20170803
  Transmission Date: 20171127
  Serious: No
  Sender: FDA-Public Use
  Company Number: US-ROCHE-1456718

PATIENT
  Sex: Female

DRUGS (3)
  1. OSPEXIN [Concomitant]
     Route: 065
     Dates: start: 20140623
  2. BONIVA [Suspect]
     Active Substance: IBANDRONATE SODIUM
     Indication: OSTEOPENIA
     Route: 065
     Dates: start: 20140602, end: 201408
  3. NABUMETONE. [Concomitant]
     Active Substance: NABUMETONE
     Route: 065

REACTIONS (1)
  - Alopecia [Not Recovered/Not Resolved]
